FAERS Safety Report 25605084 (Version 1)
Quarter: 2025Q3

REPORT INFORMATION
  Report Type: Spontaneous
  Country: IR (occurrence: IR)
  Receive Date: 20250725
  Receipt Date: 20250725
  Transmission Date: 20251021
  Serious: Yes (Death, Hospitalization, Other)
  Sender: Steriscience PTE
  Company Number: IR-STERISCIENCE B.V.-2025-ST-001358

PATIENT
  Age: 30 Year
  Sex: Female

DRUGS (7)
  1. MEROPENEM [Suspect]
     Active Substance: MEROPENEM
     Indication: Alpha haemolytic streptococcal infection
     Route: 065
     Dates: start: 202308
  2. MEROPENEM [Suspect]
     Active Substance: MEROPENEM
     Indication: Prosthetic valve endocarditis
     Route: 065
     Dates: start: 202308
  3. VANCOMYCIN [Suspect]
     Active Substance: VANCOMYCIN
     Indication: Alpha haemolytic streptococcal infection
     Route: 065
     Dates: start: 202308
  4. VANCOMYCIN [Suspect]
     Active Substance: VANCOMYCIN
     Indication: Prosthetic valve endocarditis
     Route: 065
     Dates: start: 202308
  5. DEXAMETHASONE [Concomitant]
     Active Substance: DEXAMETHASONE
     Indication: Product used for unknown indication
     Route: 065
     Dates: start: 202308
  6. FERINJECT [Concomitant]
     Active Substance: FERRIC CARBOXYMALTOSE
     Indication: Anaemia
     Route: 065
     Dates: start: 202308
  7. AMPHOTERICIN B [Concomitant]
     Active Substance: AMPHOTERICIN B
     Indication: Evidence based treatment
     Dosage: 5 MILLIGRAM/KILOGRAM, HS
     Route: 065
     Dates: start: 202308

REACTIONS (1)
  - Drug ineffective [Fatal]

NARRATIVE: CASE EVENT DATE: 20230801
